FAERS Safety Report 7648638-2 (Version None)
Quarter: 2011Q3

REPORT INFORMATION
  Report Type: 
  Country: None (occurrence: None)
  Receive Date: 20110801
  Receipt Date: 20110721
  Transmission Date: 20111222
  Serious: Yes (Hospitalization)
  Sender: FDA-Public Use
  Company Number: PHHY2010DE47942

PATIENT
  Sex: Female

DRUGS (3)
  1. ZOLEDRONOC ACID [Suspect]
     Indication: OSTEOPOROSIS
     Dosage: 5 MG/ ONCE YEARLY
     Route: 042
     Dates: start: 20100319
  2. VITAMIN D [Concomitant]
     Indication: OSTEOPOROSIS
     Dosage: 1000
  3. CALCIUM ACETATE [Concomitant]
     Indication: OSTEOPOROSIS
     Dosage: 1000 MG,

REACTIONS (2)
  - CARDIOVASCULAR DISORDER [None]
  - FALL [None]
